FAERS Safety Report 8580364-8 (Version None)
Quarter: 2012Q3

REPORT INFORMATION
  Report Type: 
  Country: None (occurrence: None)
  Receive Date: 20120808
  Receipt Date: 20120802
  Transmission Date: 20120928
  Serious: Yes (Disabling)
  Sender: FDA-Public Use
  Company Number: US-JNJFOC-20100303544

PATIENT
  Sex: Male
  Weight: 31.4 kg

DRUGS (2)
  1. INFLIXIMAB [Suspect]
     Indication: INFLAMMATORY BOWEL DISEASE
     Route: 042
     Dates: start: 20061117, end: 20080509
  2. MULTI-VITAMINS [Concomitant]

REACTIONS (1)
  - CHOLANGITIS SCLEROSING [None]
